FAERS Safety Report 11213098 (Version 1)
Quarter: 2015Q2

REPORT INFORMATION
  Report Type: Spontaneous
  Country: US (occurrence: None)
  Receive Date: 20150622
  Receipt Date: 20150622
  Transmission Date: 20150821
  Serious: Yes (Life-Threatening, Hospitalization, Disabling)
  Sender: FDA-Public Use
  Company Number: None

PATIENT
  Age: 34 Year
  Sex: Female
  Weight: 69.4 kg

DRUGS (2)
  1. XARELTO [Concomitant]
     Active Substance: RIVAROXABAN
  2. NUVARING [Suspect]
     Active Substance: ETHINYL ESTRADIOL\ETONOGESTREL
     Indication: MENSTRUAL CYCLE MANAGEMENT
     Dates: start: 20150213, end: 20150405

REACTIONS (10)
  - Gait disturbance [None]
  - Pulmonary thrombosis [None]
  - Asthenia [None]
  - Peripheral swelling [None]
  - Dyspnoea [None]
  - Impaired work ability [None]
  - Deep vein thrombosis [None]
  - Chest pain [None]
  - Activities of daily living impaired [None]
  - Hysterectomy [None]

NARRATIVE: CASE EVENT DATE: 20150404
